FAERS Safety Report 14197363 (Version 1)
Quarter: 2017Q4

REPORT INFORMATION
  Report Type: Spontaneous
  Country: US (occurrence: US)
  Receive Date: 20171116
  Receipt Date: 20171116
  Transmission Date: 20180321
  Serious: No
  Sender: FDA-Public Use
  Company Number: US-009507513-1711USA000857

PATIENT
  Age: 82 Year
  Sex: Female

DRUGS (2)
  1. TRASTUZUMAB. [Concomitant]
     Active Substance: TRASTUZUMAB
     Indication: BREAST CANCER STAGE III
     Dosage: UNK, EVERY 3 WEEKS
     Dates: start: 20150302, end: 201505
  2. PRINIVIL [Suspect]
     Active Substance: LISINOPRIL
     Indication: CARDIAC FAILURE CONGESTIVE
     Dosage: UNK
     Route: 048
     Dates: start: 201506, end: 201506

REACTIONS (2)
  - Drug intolerance [Unknown]
  - Cough [Unknown]

NARRATIVE: CASE EVENT DATE: 201506
